FAERS Safety Report 4799793-3 (Version None)
Quarter: 2005Q4

REPORT INFORMATION
  Report Type: 
  Country: None (occurrence: None)
  Receive Date: 20051012
  Receipt Date: 20051012
  Transmission Date: 20060501
  Serious: No
  Sender: FDA-Public Use
  Company Number: None

PATIENT
  Sex: Female
  Weight: 26 kg

DRUGS (2)
  1. CLAFORAN [Suspect]
     Indication: ABSCESS LIMB
     Dosage: 1GM EVERY 8 HOURS IV BOLUS
     Route: 040
     Dates: start: 20050921, end: 20051007
  2. CLAFORAN [Suspect]
     Indication: CELLULITIS
     Dosage: 1GM EVERY 8 HOURS IV BOLUS
     Route: 040
     Dates: start: 20050921, end: 20051007

REACTIONS (3)
  - BODY TEMPERATURE INCREASED [None]
  - PRURITUS [None]
  - RASH ERYTHEMATOUS [None]
